FAERS Safety Report 10657369 (Version 1)
Quarter: 2014Q4

REPORT INFORMATION
  Report Type: Spontaneous
  Country: US (occurrence: US)
  Receive Date: 20141217
  Receipt Date: 20141217
  Transmission Date: 20150529
  Serious: No
  Sender: FDA-Public Use
  Company Number: US-009507513-1411USA012823

PATIENT
  Sex: Female

DRUGS (1)
  1. NUVARING [Suspect]
     Active Substance: ETHINYL ESTRADIOL\ETONOGESTREL
     Indication: CONTRACEPTION
     Dosage: THREE WEEKS IN, ONE WEEK OUT
     Route: 067

REACTIONS (2)
  - Medical device discomfort [Unknown]
  - Medication error [Unknown]

NARRATIVE: CASE EVENT DATE: 20141126
